FAERS Safety Report 9659176 (Version 2)
Quarter: 2014Q1

REPORT INFORMATION
  Report Type: Spontaneous
  Country: JP (occurrence: JP)
  Receive Date: 20131031
  Receipt Date: 20140206
  Transmission Date: 20141002
  Serious: Yes (Hospitalization)
  Sender: FDA-Public Use
  Company Number: JP-AMGEN-JPNSP2013076652

PATIENT
  Age: 84 Year
  Sex: Female
  Weight: 30 kg

DRUGS (8)
  1. PRALIA [Suspect]
     Indication: OSTEOPOROSIS
     Route: 058
     Dates: start: 20130826
  2. AMLODIPINE [Concomitant]
     Route: 048
  3. PROPIVERINE HYDROCHLORIDE [Concomitant]
     Dosage: 10 MG, BID
     Route: 048
     Dates: end: 20131021
  4. GRAMALIL [Concomitant]
     Route: 048
  5. SENNOSIDE                          /00571901/ [Concomitant]
     Route: 048
     Dates: end: 20131021
  6. METHYCOOL [Concomitant]
     Route: 048
  7. DIART [Concomitant]
     Route: 048
  8. SODIUM PICOSULFATE [Concomitant]
     Dosage: UNKNOWN
     Route: 065

REACTIONS (1)
  - Hypocalcaemia [Not Recovered/Not Resolved]
